FAERS Safety Report 6012768-1 (Version None)
Quarter: 2008Q4

REPORT INFORMATION
  Report Type: 
  Country: None (occurrence: None)
  Receive Date: 20081217
  Receipt Date: 20081205
  Transmission Date: 20090506
  Serious: Yes (Other)
  Sender: FDA-Public Use
  Company Number: TRP_05883_2008

PATIENT
  Sex: Female

DRUGS (7)
  1. INFERGEN [Suspect]
     Indication: HEPATITIS C
     Dosage: 15 ?G QD SUBCUTANEOUS
     Route: 058
     Dates: start: 20080823
  2. RIBASPHERE [Suspect]
     Indication: HEPATITIS C
     Dosage: 600 MG BID ORAL; 1000 MG ORAL; 600 MG ORAL
     Route: 048
     Dates: start: 20080823, end: 20081001
  3. RIBASPHERE [Suspect]
     Indication: HEPATITIS C
     Dosage: 600 MG BID ORAL; 1000 MG ORAL; 600 MG ORAL
     Route: 048
     Dates: start: 20081001, end: 20081102
  4. RIBASPHERE [Suspect]
     Indication: HEPATITIS C
     Dosage: 600 MG BID ORAL; 1000 MG ORAL; 600 MG ORAL
     Route: 048
     Dates: start: 20081103
  5. LAMICTAL [Suspect]
     Indication: DEPRESSION
     Dosage: 100 MG QD
     Dates: start: 20081001, end: 20080101
  6. LITHIUM [Concomitant]
  7. SEROQUEL [Concomitant]

REACTIONS (22)
  - AMNESIA [None]
  - ANXIETY [None]
  - CHILLS [None]
  - DEPRESSION [None]
  - DISTURBANCE IN ATTENTION [None]
  - DYSGEUSIA [None]
  - FAECES DISCOLOURED [None]
  - FATIGUE [None]
  - HAEMOGLOBIN DECREASED [None]
  - HEADACHE [None]
  - HOT FLUSH [None]
  - INJECTION SITE ERYTHEMA [None]
  - INJECTION SITE INFLAMMATION [None]
  - INJECTION SITE PAIN [None]
  - INJECTION SITE PRURITUS [None]
  - INJECTION SITE RASH [None]
  - INSOMNIA [None]
  - MUSCULAR WEAKNESS [None]
  - NAUSEA [None]
  - PAIN [None]
  - RASH [None]
  - THIRST [None]
